FAERS Safety Report 24044652 (Version 2)
Quarter: 2024Q3

REPORT INFORMATION
  Report Type: Spontaneous
  Country: US (occurrence: US)
  Receive Date: 20240703
  Receipt Date: 20240915
  Transmission Date: 20241017
  Serious: No
  Sender: GLAXOSMITHKLINE
  Company Number: US-GSK-US2024AMR081283

PATIENT
  Sex: Female

DRUGS (1)
  1. BENLYSTA [Suspect]
     Active Substance: BELIMUMAB
     Indication: Systemic lupus erythematosus
     Dosage: 200 MG/ML, WE
     Route: 058

REACTIONS (5)
  - Pain [Not Recovered/Not Resolved]
  - Fatigue [Unknown]
  - Lethargy [Unknown]
  - Product dose omission issue [Unknown]
  - Drug ineffective [Unknown]
